FAERS Safety Report 24881586 (Version 1)
Quarter: 2025Q1

REPORT INFORMATION
  Report Type: Spontaneous
  Country: JP (occurrence: JP)
  Receive Date: 20250124
  Receipt Date: 20250124
  Transmission Date: 20250409
  Serious: Yes (Hospitalization, Other)
  Sender: PANACEA BIOTEC PHARMA LIMITED
  Company Number: JP-PBT-010084

PATIENT
  Age: 59 Year
  Sex: Female

DRUGS (9)
  1. TACROLIMUS [Suspect]
     Active Substance: TACROLIMUS
     Indication: Anti-melanoma differentiation-associated protein 5 antibody positive
     Route: 065
  2. PREDNISOLONE [Suspect]
     Active Substance: PREDNISOLONE
     Indication: Anti-melanoma differentiation-associated protein 5 antibody positive
     Route: 065
  3. CYCLOPHOSPHAMIDE [Suspect]
     Active Substance: CYCLOPHOSPHAMIDE
     Indication: Anti-melanoma differentiation-associated protein 5 antibody positive
     Route: 042
  4. CYCLOPHOSPHAMIDE [Suspect]
     Active Substance: CYCLOPHOSPHAMIDE
     Indication: Interstitial lung disease
     Route: 042
  5. CYCLOPHOSPHAMIDE [Suspect]
     Active Substance: CYCLOPHOSPHAMIDE
     Indication: Dermatomyositis
     Route: 042
  6. PREDNISOLONE [Suspect]
     Active Substance: PREDNISOLONE
     Indication: Interstitial lung disease
     Route: 065
  7. PREDNISOLONE [Suspect]
     Active Substance: PREDNISOLONE
     Indication: Dermatomyositis
     Route: 065
  8. TACROLIMUS [Suspect]
     Active Substance: TACROLIMUS
     Indication: Interstitial lung disease
     Route: 065
  9. TACROLIMUS [Suspect]
     Active Substance: TACROLIMUS
     Indication: Dermatomyositis
     Route: 065

REACTIONS (2)
  - Interstitial lung disease [Recovered/Resolved]
  - Product use in unapproved indication [Unknown]
